FAERS Safety Report 8552756-4 (Version None)
Quarter: 2012Q3

REPORT INFORMATION
  Report Type: 
  Country: None (occurrence: None)
  Receive Date: 20120731
  Receipt Date: 20120725
  Transmission Date: 20120928
  Serious: Yes (Other)
  Sender: FDA-Public Use
  Company Number: PHHY2012CA059683

PATIENT
  Sex: Male

DRUGS (1)
  1. EXELON [Suspect]
     Indication: DEMENTIA ALZHEIMER'S TYPE
     Dosage: 9.5 MG, DAILY
     Route: 062
     Dates: start: 20120403

REACTIONS (4)
  - GENERAL PHYSICAL HEALTH DETERIORATION [None]
  - AGGRESSION [None]
  - CONFUSIONAL STATE [None]
  - INCOHERENT [None]
